FAERS Safety Report 11468956 (Version 1)
Quarter: 2015Q3

REPORT INFORMATION
  Report Type: Spontaneous
  Country: US (occurrence: US)
  Receive Date: 20150908
  Receipt Date: 20150908
  Transmission Date: 20151125
  Serious: Yes (Other)
  Sender: FDA-Public Use
  Company Number: US-BAYER-2015-416424

PATIENT
  Sex: Female

DRUGS (1)
  1. MIRENA [Suspect]
     Active Substance: LEVONORGESTREL
     Dosage: 20 MCG/24HR, CONT
     Dates: start: 201205, end: 201212

REACTIONS (6)
  - Uterine pain [None]
  - Injury [None]
  - Abdominal pain [None]
  - Emotional distress [None]
  - Uterine perforation [None]
  - Pelvic pain [None]

NARRATIVE: CASE EVENT DATE: 201210
